FAERS Safety Report 6816714-X (Version None)
Quarter: 2010Q3

REPORT INFORMATION
  Report Type: 
  Country: None (occurrence: None)
  Receive Date: 20100706
  Receipt Date: 20100702
  Transmission Date: 20110219
  Serious: Yes (Other)
  Sender: FDA-Public Use
  Company Number: US-CEPHALON-2010002488

PATIENT
  Sex: Female
  Weight: 102 kg

DRUGS (16)
  1. NUVIGIL [Suspect]
     Indication: DEPRESSION
     Route: 048
     Dates: start: 20100210, end: 20100301
  2. NUVIGIL [Suspect]
     Route: 048
     Dates: start: 20100301, end: 20100415
  3. ZOLOFT [Concomitant]
     Dates: start: 20100210
  4. MIRTAZAPINE [Concomitant]
     Dates: start: 20100210
  5. PENICILLIN [Concomitant]
     Dates: start: 20090101
  6. LEVOTHYROXINE SODIUM [Concomitant]
  7. VYTORIN [Concomitant]
  8. ESTROGEN/PROGESTERONE [Concomitant]
  9. FISH OIL [Concomitant]
  10. ZINC [Concomitant]
  11. POTASSIUM CITRATE [Concomitant]
  12. IRON [Concomitant]
  13. MULTI-VITAMIN [Concomitant]
  14. VITAMIN C [Concomitant]
  15. CALCIUM CARBONATE [Concomitant]
  16. ASPIRIN [Concomitant]

REACTIONS (1)
  - RASH GENERALISED [None]
